FAERS Safety Report 22891971 (Version 2)
Quarter: 2024Q2

REPORT INFORMATION
  Report Type: Spontaneous
  Country: DE (occurrence: DE)
  Receive Date: 20230901
  Receipt Date: 20240517
  Transmission Date: 20240716
  Serious: Yes (Other)
  Sender: FDA-Public Use
  Company Number: DE-JNJFOC-20230837586

PATIENT

DRUGS (28)
  1. DOXORUBICIN [Suspect]
     Active Substance: DOXORUBICIN
     Indication: Plasma cell myeloma refractory
     Dosage: UNK
     Route: 065
     Dates: start: 20211101
  2. LENALIDOMIDE [Suspect]
     Active Substance: LENALIDOMIDE
     Indication: Plasma cell myeloma refractory
     Dosage: FIFTH LINE TREATMENT
     Route: 065
     Dates: start: 20150401, end: 20150901
  3. LENALIDOMIDE [Suspect]
     Active Substance: LENALIDOMIDE
     Dosage: UNK
     Route: 065
     Dates: start: 20171201, end: 20190101
  4. MELPHALAN [Suspect]
     Active Substance: MELPHALAN
     Indication: Plasma cell myeloma refractory
     Dosage: SECOND LINE TREATMENT
     Route: 065
     Dates: start: 20110702, end: 20110703
  5. MELPHALAN [Suspect]
     Active Substance: MELPHALAN
     Dosage: THIRD LINE TREATMENT
     Route: 065
     Dates: start: 20111201, end: 20111202
  6. VENETOCLAX [Suspect]
     Active Substance: VENETOCLAX
     Indication: Plasma cell myeloma refractory
     Dosage: UNK
     Route: 065
     Dates: start: 20201116
  7. DARZALEX [Suspect]
     Active Substance: DARATUMUMAB
     Indication: Plasma cell myeloma refractory
     Dosage: UNK
     Route: 042
     Dates: start: 20170101
  8. CYCLOPHOSPHAMIDE [Suspect]
     Active Substance: CYCLOPHOSPHAMIDE
     Indication: Plasma cell myeloma refractory
     Dosage: FIRST LINE TREATMENT;
     Route: 065
     Dates: start: 20110201, end: 20110701
  9. CYCLOPHOSPHAMIDE [Suspect]
     Active Substance: CYCLOPHOSPHAMIDE
     Dosage: FOURTH LINE TREATMENT;
     Route: 065
     Dates: start: 20141001
  10. CYCLOPHOSPHAMIDE [Suspect]
     Active Substance: CYCLOPHOSPHAMIDE
     Dosage: UNK
     Route: 065
     Dates: start: 20191101, end: 20221101
  11. CARFILZOMIB [Suspect]
     Active Substance: CARFILZOMIB
     Indication: Plasma cell myeloma refractory
     Dosage: UNK
     Route: 065
     Dates: start: 20171201
  12. DEXAMETHASONE [Suspect]
     Active Substance: DEXAMETHASONE
     Indication: Plasma cell myeloma refractory
     Dosage: FIRST LINE TREATMENT
     Route: 065
     Dates: start: 20110201, end: 20110701
  13. DEXAMETHASONE [Suspect]
     Active Substance: DEXAMETHASONE
     Dosage: FOURTH LINE TREATMENT
     Route: 065
     Dates: start: 20141001
  14. DEXAMETHASONE [Suspect]
     Active Substance: DEXAMETHASONE
     Dosage: FIFTH LINE TREATMENT
     Route: 065
     Dates: start: 20150401, end: 20150901
  15. DEXAMETHASONE [Suspect]
     Active Substance: DEXAMETHASONE
     Dosage: SIXTH LINE TREATMENT
     Route: 065
     Dates: start: 20151001, end: 20151201
  16. DEXAMETHASONE [Suspect]
     Active Substance: DEXAMETHASONE
     Dosage: SEVENTH LINE TREATMENT
     Route: 065
     Dates: start: 20151201
  17. DEXAMETHASONE [Suspect]
     Active Substance: DEXAMETHASONE
     Dosage: UNK
     Route: 065
     Dates: start: 20191101, end: 20221101
  18. DEXAMETHASONE [Suspect]
     Active Substance: DEXAMETHASONE
     Dosage: UNK
     Route: 065
     Dates: start: 20171201, end: 20190101
  19. DEXAMETHASONE [Suspect]
     Active Substance: DEXAMETHASONE
     Dosage: UNK
     Route: 065
     Dates: start: 20170101, end: 20171201
  20. PANOBINOSTAT [Suspect]
     Active Substance: PANOBINOSTAT
     Indication: Plasma cell myeloma refractory
     Dosage: UNK
     Route: 048
  21. IDECABTAGENE VICLEUCEL [Suspect]
     Active Substance: IDECABTAGENE VICLEUCEL
     Indication: Plasma cell myeloma refractory
     Dosage: UNK
     Route: 065
     Dates: start: 20240227
  22. POMALIDOMIDE [Suspect]
     Active Substance: POMALIDOMIDE
     Indication: Plasma cell myeloma refractory
     Dosage: SIXTH LINE TREATMENT
     Route: 065
     Dates: start: 20151001, end: 20151201
  23. POMALIDOMIDE [Suspect]
     Active Substance: POMALIDOMIDE
     Dosage: UNK
     Route: 065
     Dates: start: 20191101
  24. VELCADE [Suspect]
     Active Substance: BORTEZOMIB
     Indication: Plasma cell myeloma refractory
     Dosage: FIRST LINE TREATMENT
     Route: 065
     Dates: start: 20110201, end: 20110701
  25. VELCADE [Suspect]
     Active Substance: BORTEZOMIB
     Dosage: FOURTH LINE TREATMENT
     Route: 065
     Dates: start: 20141001
  26. VELCADE [Suspect]
     Active Substance: BORTEZOMIB
     Dosage: SEVENTH LINE TREATMENT
     Route: 065
     Dates: start: 20151201, end: 20161101
  27. VELCADE [Suspect]
     Active Substance: BORTEZOMIB
     Dosage: UNK
     Route: 065
     Dates: start: 20211101, end: 20220201
  28. VELCADE [Suspect]
     Active Substance: BORTEZOMIB
     Dosage: UNK
     Route: 065
     Dates: start: 20140201, end: 20141001

REACTIONS (1)
  - Plasma cell myeloma [Unknown]
